FAERS Safety Report 24350380 (Version 1)
Quarter: 2024Q3

REPORT INFORMATION
  Report Type: Spontaneous
  Country: CN (occurrence: CN)
  Receive Date: 20240923
  Receipt Date: 20240923
  Transmission Date: 20241017
  Serious: No
  Sender: ROCHE
  Company Number: CN-ROCHE-3508661

PATIENT
  Age: 70 Year
  Sex: Female

DRUGS (5)
  1. HERCEPTIN [Suspect]
     Active Substance: TRASTUZUMAB
     Indication: Oesophageal carcinoma
     Route: 041
     Dates: start: 20240116
  2. OXALIPLATIN [Suspect]
     Active Substance: OXALIPLATIN
     Indication: Oesophageal carcinoma
     Route: 041
     Dates: start: 20240116
  3. FLUOROURACIL [Suspect]
     Active Substance: FLUOROURACIL
     Indication: Oesophageal carcinoma
     Route: 041
     Dates: start: 20240116
  4. FLUOROURACIL [Suspect]
     Active Substance: FLUOROURACIL
     Route: 041
     Dates: start: 20240116
  5. LEVOLEUCOVORIN CALCIUM [Concomitant]
     Active Substance: LEVOLEUCOVORIN CALCIUM
     Indication: Oesophageal carcinoma
     Route: 042
     Dates: start: 20240116, end: 20240116

REACTIONS (4)
  - Platelet count decreased [Recovering/Resolving]
  - White blood cell count decreased [Unknown]
  - Neutrophil count decreased [Unknown]
  - Off label use [Unknown]

NARRATIVE: CASE EVENT DATE: 20240129
